FAERS Safety Report 5649991-1 (Version None)
Quarter: 2008Q1

REPORT INFORMATION
  Report Type: 
  Country: None (occurrence: None)
  Receive Date: 20080131
  Receipt Date: 20071129
  Transmission Date: 20080703
  Serious: No
  Sender: FDA-Public Use
  Company Number: US200711006880

PATIENT
  Age: 69 Year
  Sex: Male
  Weight: 121.1 kg

DRUGS (11)
  1. BYETTA [Suspect]
     Indication: TYPE 2 DIABETES MELLITUS
     Dosage: 5 UG, 2/D, SUBCUTANEOUS ; 10 UG, 2/D, SUBCUTANEOUS
     Route: 058
     Dates: start: 20070801, end: 20071001
  2. BYETTA [Suspect]
     Indication: TYPE 2 DIABETES MELLITUS
     Dosage: 5 UG, 2/D, SUBCUTANEOUS ; 10 UG, 2/D, SUBCUTANEOUS
     Route: 058
     Dates: start: 20071001
  3. METFORMIN HCL [Concomitant]
  4. AVANDIA [Concomitant]
  5. ASPIRIN [Concomitant]
  6. LASIX [Concomitant]
  7. OMACOR [Concomitant]
  8. FENOFIBRATE [Concomitant]
  9. TELMISARTAN (TELMISARTAN) [Concomitant]
  10. AMBIEN [Concomitant]
  11. ATENOLOL [Concomitant]

REACTIONS (4)
  - ANAEMIA [None]
  - BLOOD GLUCOSE INCREASED [None]
  - DIARRHOEA [None]
  - DRUG EFFECT DECREASED [None]
